FAERS Safety Report 16097963 (Version 4)
Quarter: 2019Q2

REPORT INFORMATION
  Report Type: Spontaneous
  Country: JP (occurrence: JP)
  Receive Date: 20190320
  Receipt Date: 20190522
  Transmission Date: 20190711
  Serious: Yes (Death, Life-Threatening, Hospitalization, Other)
  Sender: FDA-Public Use
  Company Number: JP-009507513-1903JPN001587J

PATIENT
  Age: 68 Year
  Sex: Male
  Weight: 68 kg

DRUGS (6)
  1. KEYTRUDA [Suspect]
     Active Substance: PEMBROLIZUMAB
     Indication: NON-SMALL CELL LUNG CANCER
     Dosage: 200 MILLIGRAM, Q3W
     Route: 041
     Dates: start: 20190214, end: 20190214
  2. FEXOFENADINE HYDROCHLORIDE. [Concomitant]
     Active Substance: FEXOFENADINE HYDROCHLORIDE
     Dosage: UNK
     Route: 065
  3. CARBOCISTEINE [Concomitant]
     Active Substance: CARBOCYSTEINE
     Dosage: UNK
     Route: 065
  4. AMBROXOL HYDROCHLORIDE L [Concomitant]
     Active Substance: AMBROXOL HYDROCHLORIDE
     Dosage: UNK
     Route: 065
  5. ROSUVASTATIN. [Concomitant]
     Active Substance: ROSUVASTATIN
     Dosage: UNK
     Route: 065
  6. BROTIZOLAM [Concomitant]
     Active Substance: BROTIZOLAM
     Dosage: UNK
     Route: 065

REACTIONS (10)
  - Rhabdomyolysis [Fatal]
  - Eye movement disorder [Unknown]
  - Myasthenia gravis [Fatal]
  - Asphyxia [Fatal]
  - Myositis [Fatal]
  - Hepatic function abnormal [Not Recovered/Not Resolved]
  - Malignant neoplasm progression [Unknown]
  - Eyelid ptosis [Unknown]
  - Dysphagia [Fatal]
  - Antiacetylcholine receptor antibody positive [Not Recovered/Not Resolved]

NARRATIVE: CASE EVENT DATE: 2019
